FAERS Safety Report 7942893-7 (Version None)
Quarter: 2011Q4

REPORT INFORMATION
  Report Type: 
  Country: None (occurrence: None)
  Receive Date: 20111122
  Receipt Date: 20110801
  Transmission Date: 20120403
  Serious: Yes (Hospitalization, Other)
  Sender: FDA-Public Use
  Company Number: PHHY2011US67676

PATIENT
  Age: 57 Year
  Sex: Female

DRUGS (8)
  1. BACLOFEN [Concomitant]
  2. GILENYA [Suspect]
     Indication: MULTIPLE SCLEROSIS
     Dosage: 0.5MG, QD, ORAL
     Route: 048
     Dates: start: 20110718, end: 20110718
  3. PANTOPRAZOLE [Concomitant]
  4. SIMVASTATIN [Concomitant]
  5. EVISTA [Concomitant]
  6. LYRICA [Concomitant]
  7. CALCIUM CARBONATE [Concomitant]
  8. DETROL LA [Concomitant]

REACTIONS (1)
  - BRADYCARDIA [None]
